FAERS Safety Report 6471828-1 (Version None)
Quarter: 2009Q4

REPORT INFORMATION
  Report Type: 
  Country: None (occurrence: None)
  Receive Date: 20091203
  Receipt Date: 20080421
  Transmission Date: 20100525
  Serious: Yes (Other)
  Sender: FDA-Public Use
  Company Number: NL-ELI_LILLY_AND_COMPANY-NL200803002803

PATIENT
  Sex: Male
  Weight: 89.5 kg

DRUGS (7)
  1. CYMBALTA [Suspect]
     Indication: DEPRESSION
     Dosage: UNK, UNKNOWN
     Route: 048
     Dates: start: 20080218
  2. CYMBALTA [Suspect]
     Dosage: UNK, EACH EVENING
  3. LIPITOR [Concomitant]
     Dosage: 1 D/F, DAILY (1/D)
     Route: 065
     Dates: start: 20050101
  4. METFORMIN HCL [Concomitant]
     Dosage: 500 MG, 3/D
     Route: 065
     Dates: start: 20060101
  5. ENALAPRIL [Concomitant]
     Dosage: 10 MG, DAILY (1/D)
     Route: 065
     Dates: start: 20040101
  6. ISOSORBIDE [Concomitant]
     Dosage: 60 MG, DAILY (1/D)
     Route: 065
     Dates: start: 20040101
  7. ISOSORBIDE [Concomitant]
     Dosage: UNK, EACH EVENING
     Route: 065

REACTIONS (1)
  - CHEST PAIN [None]
